FAERS Safety Report 8208198-4 (Version None)
Quarter: 2012Q1

REPORT INFORMATION
  Report Type: 
  Country: None (occurrence: None)
  Receive Date: 20120314
  Receipt Date: 20120308
  Transmission Date: 20120608
  Serious: Yes (Other)
  Sender: FDA-Public Use
  Company Number: PHHY2012CN020658

PATIENT
  Sex: Male

DRUGS (2)
  1. ZOLEDRONIC ACID [Suspect]
  2. ZOMETA [Suspect]
     Indication: PROSTATE CANCER

REACTIONS (2)
  - PAIN IN JAW [None]
  - OSTEONECROSIS OF JAW [None]
